FAERS Safety Report 10659318 (Version 1)
Quarter: 2014Q4

REPORT INFORMATION
  Report Type: Spontaneous
  Country: US (occurrence: US)
  Receive Date: 20141217
  Receipt Date: 20141217
  Transmission Date: 20150529
  Serious: No
  Sender: FDA-Public Use
  Company Number: US-BAYER-2014-185373

PATIENT
  Age: 73 Year
  Sex: Male
  Weight: 81 kg

DRUGS (1)
  1. ALEVE [Suspect]
     Active Substance: NAPROXEN SODIUM
     Indication: ARTHRITIS
     Dosage: 1 DF, BID
     Route: 048
     Dates: start: 20141125, end: 20141215

REACTIONS (3)
  - Wrong technique in drug usage process [None]
  - Drug ineffective [Not Recovered/Not Resolved]
  - Incorrect drug administration duration [None]

NARRATIVE: CASE EVENT DATE: 20141125
